FAERS Safety Report 9011308 (Version 2)
Quarter: 2013Q1

REPORT INFORMATION
  Report Type: Other
  Country: SE (occurrence: SE)
  Receive Date: 20130109
  Receipt Date: 20130221
  Transmission Date: 20140127
  Serious: Yes (Hospitalization)
  Sender: FDA-Public Use
  Company Number: SE-WATSON-2012-23361

PATIENT
  Age: 83 Year
  Sex: Female

DRUGS (2)
  1. ALENAT [Suspect]
     Indication: OSTEOPOROSIS
     Dosage: 70 MG, 1/WEEK, TREATMENT PERIOD 4 YEARS
     Route: 048
     Dates: start: 2008
  2. FOSAMAX [Suspect]
     Indication: OSTEOPOROSIS
     Dosage: TREATMENT PERIOD 4 YEARS
     Route: 065
     Dates: start: 2003, end: 2007

REACTIONS (2)
  - Pathological fracture [Not Recovered/Not Resolved]
  - Fall [None]
